FAERS Safety Report 5315104-9 (Version None)
Quarter: 2007Q2

REPORT INFORMATION
  Report Type: 
  Country: None (occurrence: None)
  Receive Date: 20070502
  Receipt Date: 20070424
  Transmission Date: 20071010
  Serious: Yes (Hospitalization, Disabling)
  Sender: FDA-Public Use
  Company Number: DE-BOEHRINGER INGELHEIM PHARMACEUTICALS, INC.-2007-DE-01988DE

PATIENT
  Sex: Female
  Weight: 85 kg

DRUGS (10)
  1. SIFROL [Suspect]
     Indication: RESTLESS LEGS SYNDROME
     Route: 048
     Dates: start: 20050701, end: 20060301
  2. SIFROL [Suspect]
     Indication: EXTRAPYRAMIDAL DISORDER
  3. MADOPAR LT [Suspect]
     Indication: RESTLESS LEGS SYNDROME
     Dosage: 400-500 MG LEVODOPA/BENSERAZIDE
     Route: 048
     Dates: start: 20030801, end: 20040101
  4. RESTEX RETARD [Suspect]
     Indication: RESTLESS LEGS SYNDROME
     Dosage: AT NIGHT
     Route: 048
     Dates: start: 20030801, end: 20040101
  5. MADOPAR LT [Suspect]
     Dosage: 200 MG LEVODOPA/BENSERAZIDE
     Route: 048
     Dates: start: 20040101, end: 20050101
  6. VALORON [Suspect]
     Indication: RESTLESS LEGS SYNDROME
     Dosage: AT NIGHT
     Route: 048
     Dates: start: 20040101, end: 20050101
  7. REQUIP [Suspect]
     Indication: RESTLESS LEGS SYNDROME
     Route: 048
     Dates: start: 20050201, end: 20050601
  8. MAGNEROT CLASSIC [Concomitant]
  9. VALORON [Concomitant]
  10. CEFERRO [Concomitant]

REACTIONS (12)
  - ANXIETY [None]
  - DRUG EFFECT DECREASED [None]
  - DYSPNOEA [None]
  - FEELING ABNORMAL [None]
  - HYPERCHOLESTEROLAEMIA [None]
  - HYPERURICAEMIA [None]
  - INTERCOSTAL NEURALGIA [None]
  - INTERVERTEBRAL DISC DISPLACEMENT [None]
  - MAGNESIUM DEFICIENCY [None]
  - MUSCULAR WEAKNESS [None]
  - SPINAL OSTEOARTHRITIS [None]
  - THYROID NEOPLASM [None]
